FAERS Safety Report 6095559-5 (Version None)
Quarter: 2009Q1

REPORT INFORMATION
  Report Type: 
  Country: None (occurrence: None)
  Receive Date: 20090227
  Receipt Date: 20080416
  Transmission Date: 20090719
  Serious: No
  Sender: FDA-Public Use
  Company Number: A0724587A

PATIENT
  Age: 37 Year
  Sex: Female

DRUGS (2)
  1. LAMICTAL [Suspect]
     Indication: BIPOLAR DISORDER
     Dosage: 100MG PER DAY
     Route: 048
  2. SEROQUEL [Concomitant]

REACTIONS (1)
  - EAR PAIN [None]
